FAERS Safety Report 19064262 (Version 2)
Quarter: 2021Q2

REPORT INFORMATION
  Report Type: Report from Study
  Country: US (occurrence: US)
  Receive Date: 20210326
  Receipt Date: 20210409
  Transmission Date: 20210717
  Serious: Yes (Hospitalization)
  Sender: FDA-Public Use
  Company Number: US-JNJFOC-20210245887

PATIENT
  Age: 33 Year
  Sex: Female

DRUGS (3)
  1. MACITENTAN [Suspect]
     Active Substance: MACITENTAN
     Indication: PULMONARY ARTERIAL HYPERTENSION
     Route: 048
     Dates: start: 20191203
  2. REMODULIN [Suspect]
     Active Substance: TREPROSTINIL
     Indication: PRODUCT USED FOR UNKNOWN INDICATION
     Route: 065
  3. EPOPROSTENOL SODIUM. [Suspect]
     Active Substance: EPOPROSTENOL SODIUM
     Indication: PULMONARY ARTERIAL HYPERTENSION
     Route: 042

REACTIONS (7)
  - Palpitations [Not Recovered/Not Resolved]
  - Pain in jaw [Unknown]
  - Chest discomfort [Unknown]
  - Diarrhoea [Recovering/Resolving]
  - Headache [Unknown]
  - Hypertension [Unknown]
  - Nausea [Unknown]

NARRATIVE: CASE EVENT DATE: 202102
